FAERS Safety Report 4803215-3 (Version None)
Quarter: 2005Q3

REPORT INFORMATION
  Report Type: 
  Country: None (occurrence: None)
  Receive Date: 20050929
  Receipt Date: 20050621
  Transmission Date: 20060218
  Serious: Yes (Hospitalization)
  Sender: FDA-Public Use
  Company Number: 05P-163-0303741-00

PATIENT
  Age: 56 Year
  Sex: Female
  Weight: 136.4 kg

DRUGS (4)
  1. HUMIRA [Suspect]
     Indication: OSTEOARTHRITIS
     Dosage: 40 MG, ONCE, SUBCUTANEOUS
     Route: 058
     Dates: start: 20050201, end: 20050201
  2. METHOTREXATE [Concomitant]
  3. MELOXICAM [Concomitant]
  4. VICODIN [Concomitant]

REACTIONS (4)
  - ANOREXIA [None]
  - DEHYDRATION [None]
  - NAUSEA [None]
  - PNEUMONIA [None]
